FAERS Safety Report 11615308 (Version 1)
Quarter: 2015Q4

REPORT INFORMATION
  Report Type: Spontaneous
  Country: JP (occurrence: JP)
  Receive Date: 20151009
  Receipt Date: 20151009
  Transmission Date: 20160304
  Serious: Yes (Hospitalization)
  Sender: FDA-Public Use
  Company Number: PHJP2015JP017151

PATIENT
  Age: 86 Year
  Sex: Female

DRUGS (1)
  1. EXELON PATCH [Suspect]
     Active Substance: RIVASTIGMINE
     Indication: DEMENTIA
     Dosage: 9.5 MG/24H (PATCH 10 CM2, 18 MG RIVASTIGMINE BASE DAILY)
     Route: 062

REACTIONS (3)
  - Pneumonia aspiration [Unknown]
  - Dysphagia [Unknown]
  - Asthenia [Unknown]
